FAERS Safety Report 6842719-9 (Version None)
Quarter: 2010Q3

REPORT INFORMATION
  Report Type: 
  Country: None (occurrence: None)
  Receive Date: 20100714
  Receipt Date: 20070802
  Transmission Date: 20110219
  Serious: Yes (Other)
  Sender: FDA-Public Use
  Company Number: US-PFIZER INC-2007065804

PATIENT
  Sex: Female
  Weight: 97.7 kg

DRUGS (2)
  1. CHANTIX [Suspect]
     Indication: SMOKING CESSATION THERAPY
     Dates: start: 20070717, end: 20070731
  2. PREVACID [Concomitant]

REACTIONS (2)
  - HOSTILITY [None]
  - MENTAL DISORDER [None]
